FAERS Safety Report 4635709-8 (Version None)
Quarter: 2005Q2

REPORT INFORMATION
  Report Type: 
  Country: None (occurrence: None)
  Receive Date: 20050413
  Receipt Date: 20050405
  Transmission Date: 20051028
  Serious: Yes (Life-Threatening)
  Sender: FDA-Public Use
  Company Number: 05H-163-0296391-00

PATIENT
  Age: 23 Year
  Sex: Female

DRUGS (2)
  1. SUCCINYLCHOLINE CHLORIDE [Suspect]
     Dosage: 10 MG, INTRAVENOUS
     Route: 042
  2. ANESTHESIA [Concomitant]

REACTIONS (5)
  - ANAESTHETIC COMPLICATION [None]
  - APNOEA [None]
  - DRUG EXPOSURE DURING PREGNANCY [None]
  - LOSS OF CONSCIOUSNESS [None]
  - MEDICATION ERROR [None]
